FAERS Safety Report 16190902 (Version 1)
Quarter: 2019Q2

REPORT INFORMATION
  Report Type: Spontaneous
  Country: NL (occurrence: FR)
  Receive Date: 20190412
  Receipt Date: 20190412
  Transmission Date: 20190711
  Serious: Yes (Hospitalization)
  Sender: FDA-Public Use
  Company Number: FR-FRESENIUS KABI-FK201903756

PATIENT
  Age: 58 Year
  Sex: Male

DRUGS (14)
  1. SACCHARATED IRON OXIDE [Suspect]
     Active Substance: IRON SUCROSE
     Indication: IRON DEFICIENCY ANAEMIA
     Route: 042
     Dates: start: 20190212, end: 20190218
  2. MAGNESIUM GLYCEROPHOSPHATE/SODIUM PHOSPHATE DIBASIC/PHOSPHORIC ACID/CALCIUM PHOSPHATE MONOBASIC [Concomitant]
  3. PARACETAMOL [Concomitant]
     Active Substance: ACETAMINOPHEN
  4. FOLIC ACID. [Concomitant]
     Active Substance: FOLIC ACID
  5. METHYLPREDNISOLONE SODIUM SUCCINATE. [Suspect]
     Active Substance: METHYLPREDNISOLONE SODIUM SUCCINATE
     Indication: PREMEDICATION
     Route: 048
     Dates: start: 20190218, end: 20190219
  6. LENOGRASTIM [Suspect]
     Active Substance: LENOGRASTIM
     Indication: NEUTROPENIA
     Route: 058
     Dates: start: 20190220, end: 20190224
  7. TRAMADOL. [Concomitant]
     Active Substance: TRAMADOL
  8. FUROSEMIDE SODIUM [Suspect]
     Active Substance: FUROSEMIDE SODIUM
     Indication: OEDEMA PERIPHERAL
     Route: 042
     Dates: start: 20190218, end: 20190224
  9. LINEZOLID 600 MG [Suspect]
     Active Substance: LINEZOLID
     Indication: STAPHYLOCOCCAL SEPSIS
     Route: 065
     Dates: start: 20190222, end: 20190227
  10. ENOXAPARIN SODIUM. [Concomitant]
     Active Substance: ENOXAPARIN SODIUM
  11. PIPERACILLIN SODIUM/TAZOBACTAM SODIUM [Concomitant]
  12. METOCLOPRAMIDE HYDROCHLORIDE. [Concomitant]
     Active Substance: METOCLOPRAMIDE HYDROCHLORIDE
  13. GLUCOSE 1-PHOSPHATE DISODIUM [Concomitant]
     Active Substance: .ALPHA.-GLUCOSE-1-PHOSPHATE
  14. POTASSIUM CHLORIDE. [Concomitant]
     Active Substance: POTASSIUM CHLORIDE

REACTIONS (1)
  - Acute generalised exanthematous pustulosis [Recovered/Resolved]

NARRATIVE: CASE EVENT DATE: 20190226
